FAERS Safety Report 25436969 (Version 1)
Quarter: 2025Q2

REPORT INFORMATION
  Report Type: Report from Study
  Country: US (occurrence: US)
  Receive Date: 20250615
  Receipt Date: 20250615
  Transmission Date: 20250717
  Serious: Yes (Hospitalization, Other)
  Sender: ABBVIE
  Company Number: US-ABBVIE-6321752

PATIENT
  Age: 76 Year
  Sex: Male

DRUGS (1)
  1. LUPRON [Suspect]
     Active Substance: LEUPROLIDE ACETATE
     Indication: Product used for unknown indication
     Route: 065
     Dates: start: 20250401

REACTIONS (2)
  - Intestinal haemorrhage [Recovered/Resolved]
  - Radiotherapy [Unknown]

NARRATIVE: CASE EVENT DATE: 20250501
